FAERS Safety Report 11398386 (Version 1)
Quarter: 2015Q3

REPORT INFORMATION
  Report Type: Spontaneous
  Country: US (occurrence: None)
  Receive Date: 20150817
  Receipt Date: 20150817
  Transmission Date: 20151125
  Serious: Yes (Hospitalization)
  Sender: FDA-Public Use
  Company Number: None

PATIENT
  Age: 63 Year
  Sex: Male
  Weight: 170.7 kg

DRUGS (1)
  1. VANCOMYCIN [Suspect]
     Active Substance: VANCOMYCIN
     Indication: CELLULITIS
     Route: 042
     Dates: start: 20140724, end: 20150725

REACTIONS (18)
  - Tachypnoea [None]
  - Atrial fibrillation [None]
  - Pruritus [None]
  - Pallor [None]
  - Drug eruption [None]
  - Pneumonia [None]
  - Osteomyelitis [None]
  - Documented hypersensitivity to administered product [None]
  - Tachycardia [None]
  - Staphylococcal infection [None]
  - Rash [None]
  - Erythema [None]
  - Rash pustular [None]
  - Acute kidney injury [None]
  - Leukocytosis [None]
  - Cellulitis [None]
  - Pyrexia [None]
  - Acute generalised exanthematous pustulosis [None]

NARRATIVE: CASE EVENT DATE: 20150725
